FAERS Safety Report 14666583 (Version 1)
Quarter: 2018Q1

REPORT INFORMATION
  Report Type: Spontaneous
  Country: BR (occurrence: BR)
  Receive Date: 20180322
  Receipt Date: 20180322
  Transmission Date: 20180509
  Serious: Yes (Disabling)
  Sender: FDA-Public Use
  Company Number: BR-B.I. PHARMACEUTICALS,INC./RIDGEFIELD-2018-BI-015303

PATIENT
  Age: 21 Year
  Sex: Female
  Weight: 70 kg

DRUGS (4)
  1. RISPERIDONA [Concomitant]
     Active Substance: RISPERIDONE
     Indication: PSYCHOMOTOR HYPERACTIVITY
     Route: 048
     Dates: start: 2000
  2. ATENSINA [Suspect]
     Active Substance: CLONIDINE
     Indication: PSYCHOMOTOR HYPERACTIVITY
     Route: 048
     Dates: end: 201801
  3. ARISTAB [Concomitant]
     Active Substance: ARIPIPRAZOLE
     Indication: PSYCHOMOTOR HYPERACTIVITY
     Route: 048
     Dates: start: 2002
  4. ATENSINA [Suspect]
     Active Substance: CLONIDINE
     Indication: AUTISM SPECTRUM DISORDER
     Route: 048
     Dates: start: 201801

REACTIONS (4)
  - Incorrect dose administered [Not Recovered/Not Resolved]
  - Drug ineffective [Not Recovered/Not Resolved]
  - Incorrect dose administered [Recovered/Resolved]
  - Off label use [Not Recovered/Not Resolved]

NARRATIVE: CASE EVENT DATE: 201801
